FAERS Safety Report 9494543 (Version 3)
Quarter: 2014Q2

REPORT INFORMATION
  Report Type: Report from Study
  Country: AU (occurrence: AU)
  Receive Date: 20130903
  Receipt Date: 20140410
  Transmission Date: 20141212
  Serious: Yes (Hospitalization, Other)
  Sender: FDA-Public Use
  Company Number: PHHY2013AU092778

PATIENT
  Age: 44 Year
  Sex: Female

DRUGS (8)
  1. SOM230 [Suspect]
     Indication: PITUITARY-DEPENDENT CUSHING^S SYNDROME
     Dosage: 600 UG, BID
     Route: 058
     Dates: start: 20130603
  2. SOM230 [Suspect]
     Dosage: 300 UG, BID
     Route: 058
  3. SOM230 [Suspect]
     Dosage: 150 UG, BID
     Route: 058
  4. SOM230 [Suspect]
     Dosage: 300 UG, BID
     Route: 058
  5. SOM230 [Suspect]
     Dosage: 600 UG, BID
     Route: 058
     Dates: start: 20140401
  6. LAMOTRIGINE [Concomitant]
     Dosage: 200 MG
  7. VALDOXAN [Concomitant]
     Indication: DEPRESSION
     Dosage: 25 MG
     Dates: end: 20140314
  8. BIOTIN [Concomitant]
     Indication: APPETITE DISORDER
     Dosage: 10 UG

REACTIONS (11)
  - Cellulitis [Not Recovered/Not Resolved]
  - White blood cell count increased [Not Recovered/Not Resolved]
  - Malaise [Not Recovered/Not Resolved]
  - Aphasia [Not Recovered/Not Resolved]
  - Cognitive disorder [Not Recovered/Not Resolved]
  - Depressed mood [Not Recovered/Not Resolved]
  - Skin lesion [Not Recovered/Not Resolved]
  - Urticaria [Not Recovered/Not Resolved]
  - Diarrhoea [Recovering/Resolving]
  - Nausea [Recovering/Resolving]
  - Blood cortisol decreased [Unknown]
